FAERS Safety Report 8818142 (Version 6)
Quarter: 2016Q3

REPORT INFORMATION
  Report Type: Spontaneous
  Country: US (occurrence: US)
  Receive Date: 20121001
  Receipt Date: 20160802
  Transmission Date: 20161109
  Serious: Yes (Disabling, Other)
  Sender: FDA-Public Use
  Company Number: US-ASTRAZENECA-2012SE74311

PATIENT
  Age: 39 Year
  Sex: Male
  Weight: 84.4 kg

DRUGS (38)
  1. LIPITOR [Concomitant]
     Active Substance: ATORVASTATIN CALCIUM
     Dosage: 40.0MG UNKNOWN
     Dates: start: 20101206
  2. SPIRIVA [Concomitant]
     Active Substance: TIOTROPIUM BROMIDE MONOHYDRATE
     Dosage: 185.0UG UNKNOWN
     Dates: start: 20110712
  3. CRESTOR [Suspect]
     Active Substance: ROSUVASTATIN CALCIUM
     Indication: BLOOD CHOLESTEROL INCREASED
     Route: 048
     Dates: start: 1998
  4. LIPITOR [Concomitant]
     Active Substance: ATORVASTATIN CALCIUM
     Dates: start: 200612, end: 201102
  5. METOLAZONE. [Concomitant]
     Active Substance: METOLAZONE
     Dosage: 5.0MG UNKNOWN
     Dates: start: 20110525
  6. FUROSEMIDE. [Concomitant]
     Active Substance: FUROSEMIDE
  7. LIPITOR [Concomitant]
     Active Substance: ATORVASTATIN CALCIUM
     Dosage: 40.0MG UNKNOWN
     Dates: start: 2008, end: 2012
  8. NEXIUM [Concomitant]
     Active Substance: ESOMEPRAZOLE MAGNESIUM
     Indication: DYSPEPSIA
     Dosage: 40.0MG UNKNOWN
     Dates: start: 20100218
  9. LOVAZA [Concomitant]
     Active Substance: OMEGA-3-ACID ETHYL ESTERS
     Dosage: 1.0G UNKNOWN
     Dates: start: 20100222
  10. ASPIRIN. [Concomitant]
     Active Substance: ASPIRIN
     Dosage: 81.0MG UNKNOWN
     Dates: start: 20100519
  11. METFORMIN HCL [Concomitant]
     Active Substance: METFORMIN HYDROCHLORIDE
     Dosage: 500.0MG UNKNOWN
     Dates: start: 20120524
  12. AMOXICILLIN. [Concomitant]
     Active Substance: AMOXICILLIN
     Dosage: 500.0MG UNKNOWN
     Dates: start: 20130810
  13. COREG [Concomitant]
     Active Substance: CARVEDILOL
     Route: 048
  14. CRESTOR [Suspect]
     Active Substance: ROSUVASTATIN CALCIUM
     Indication: BLOOD CHOLESTEROL INCREASED
     Dosage: 10.0MG UNKNOWN
     Route: 048
     Dates: start: 20120209
  15. HYDROCORTISONE. [Concomitant]
     Active Substance: HYDROCORTISONE
     Dates: start: 201302, end: 201310
  16. TRILIPIX [Concomitant]
     Active Substance: FENOFIBRIC ACID
     Dosage: 135.0MG UNKNOWN
     Dates: start: 20100218
  17. MELOXICAM. [Concomitant]
     Active Substance: MELOXICAM
     Dosage: 7.5MG UNKNOWN
     Dates: start: 20100218
  18. LISINOPRIL. [Concomitant]
     Active Substance: LISINOPRIL
     Dosage: 2.5MG UNKNOWN
     Dates: start: 20110525
  19. SPIRONOLACTONE. [Concomitant]
     Active Substance: SPIRONOLACTONE
     Dosage: 25.0MG UNKNOWN
     Dates: start: 20110525
  20. ENDOCET [Concomitant]
     Active Substance: ACETAMINOPHEN\OXYCODONE HYDROCHLORIDE
     Dosage: 5-325 MG
     Dates: start: 20110928
  21. CRESTOR [Suspect]
     Active Substance: ROSUVASTATIN CALCIUM
     Indication: BLOOD CHOLESTEROL INCREASED
     Dosage: 20.0MG UNKNOWN
     Route: 048
     Dates: start: 20090721
  22. TOPROL XL [Concomitant]
     Active Substance: METOPROLOL SUCCINATE
     Dosage: 40.0MG UNKNOWN
     Dates: start: 20101206
  23. PLAVIX [Concomitant]
     Active Substance: CLOPIDOGREL BISULFATE
     Dosage: 75.0MG UNKNOWN
     Dates: start: 20100218
  24. ISOSORBIDE MONONITRATE. [Concomitant]
     Active Substance: ISOSORBIDE MONONITRATE
     Dosage: 60.0MG UNKNOWN
     Dates: start: 20110624
  25. CARVEDILOL. [Concomitant]
     Active Substance: CARVEDILOL
     Dosage: 6.25MG UNKNOWN
     Dates: start: 20110928
  26. OMEPRAZOLE. [Concomitant]
     Active Substance: OMEPRAZOLE
     Dosage: 20.0MG UNKNOWN
     Dates: start: 20120423
  27. LOVASTATIN. [Concomitant]
     Active Substance: LOVASTATIN
     Dosage: 20.0MG UNKNOWN
     Dates: start: 20130525
  28. LASIX [Concomitant]
     Active Substance: FUROSEMIDE
  29. WARFARIN [Concomitant]
     Active Substance: WARFARIN
  30. WARFARIN SODIUM. [Concomitant]
     Active Substance: WARFARIN SODIUM
     Dosage: 5.0MG UNKNOWN
     Dates: start: 20110928
  31. AMBIEN CR [Concomitant]
     Active Substance: ZOLPIDEM TARTRATE
     Dosage: 125.0MG UNKNOWN
  32. ACETAMINOPHENE [Concomitant]
     Dosage: 500.0MG UNKNOWN
     Dates: start: 20100519
  33. DOCUSATE [Concomitant]
     Active Substance: DOCUSATE
     Dosage: 100.0MG UNKNOWN
     Dates: start: 20110928
  34. GLIPIZIDE. [Concomitant]
     Active Substance: GLIPIZIDE
     Dosage: 2.5MG UNKNOWN
     Dates: start: 20120524
  35. PSEUDOEPHEDRINE [Concomitant]
     Active Substance: PSEUDOEPHEDRINE
     Dates: start: 20121211
  36. LOVASTATIN. [Concomitant]
     Active Substance: LOVASTATIN
     Dates: start: 2011
  37. PEPCID [Concomitant]
     Active Substance: FAMOTIDINE
  38. COUMADIN [Concomitant]
     Active Substance: WARFARIN SODIUM
     Route: 048

REACTIONS (6)
  - Type 2 diabetes mellitus [Not Recovered/Not Resolved]
  - Coronary artery disease [Unknown]
  - Hypertension [Unknown]
  - Gastrooesophageal reflux disease [Unknown]
  - Myocardial infarction [Not Recovered/Not Resolved]
  - Haemorrhoids [Unknown]

NARRATIVE: CASE EVENT DATE: 2001
